FAERS Safety Report 5552807-5 (Version None)
Quarter: 2007Q4

REPORT INFORMATION
  Report Type: 
  Country: None (occurrence: None)
  Receive Date: 20071212
  Receipt Date: 20070627
  Transmission Date: 20080405
  Serious: No
  Sender: FDA-Public Use
  Company Number: US-AMGEN-KDL231638

PATIENT
  Sex: Female

DRUGS (3)
  1. ENBREL [Suspect]
     Indication: RHEUMATOID ARTHRITIS
  2. PLAQUENIL [Concomitant]
     Dates: start: 20060901
  3. METHOTREXATE [Concomitant]
     Route: 047
     Dates: start: 20061101

REACTIONS (1)
  - INJECTION SITE IRRITATION [None]
